FAERS Safety Report 5797723-9 (Version None)
Quarter: 2008Q2

REPORT INFORMATION
  Report Type: 
  Country: None (occurrence: None)
  Receive Date: 20080618
  Receipt Date: 20070801
  Transmission Date: 20081010
  Serious: Yes (Other)
  Sender: FDA-Public Use
  Company Number: 200713628US

PATIENT
  Age: 50 Year
  Sex: Female

DRUGS (13)
  1. LANTUS [Suspect]
     Indication: TYPE 2 DIABETES MELLITUS
     Dosage: 40 U HS
     Dates: start: 20070401
  2. LANTUS [Suspect]
     Indication: TYPE 2 DIABETES MELLITUS
     Dosage: 90 U/DAY
     Dates: start: 20070401
  3. OPTICLIK GREY [Suspect]
     Indication: TYPE 2 DIABETES MELLITUS
  4. GLUCOVANCE [Suspect]
  5. AVANDIA [Suspect]
  6. BENICAR [Suspect]
  7. LEVOXYL [Suspect]
  8. ZOLOFT [Concomitant]
  9. SINGULAIR [Suspect]
  10. PREVACID [Concomitant]
  11. CRESTOR [Suspect]
  12. ZETIA [Suspect]
  13. NAPROSYN [Concomitant]

REACTIONS (6)
  - BLOOD GLUCOSE DECREASED [None]
  - BLOOD GLUCOSE FLUCTUATION [None]
  - BLOOD GLUCOSE INCREASED [None]
  - HYPERGLYCAEMIA [None]
  - HYPOAESTHESIA ORAL [None]
  - NERVOUSNESS [None]
